FAERS Safety Report 11794021 (Version 1)
Quarter: 2015Q4

REPORT INFORMATION
  Report Type: Spontaneous
  Country: US (occurrence: None)
  Receive Date: 20151201
  Receipt Date: 20151201
  Transmission Date: 20160305
  Serious: No
  Sender: FDA-Public Use
  Company Number: None

PATIENT
  Age: 64 Year
  Sex: Female
  Weight: 90.72 kg

DRUGS (5)
  1. LEVOTHYROXIN [Suspect]
     Active Substance: LEVOTHYROXINE
     Indication: HYPOTHYROIDISM
     Dosage: 112 MCG TAB 1 PILL DAILY MOUTH ON EMPTY STOMACH
     Route: 048
     Dates: start: 20151001, end: 20151009
  2. FISH OIL [Concomitant]
     Active Substance: FISH OIL
  3. VITAMIN D [Concomitant]
     Active Substance: CHOLECALCIFEROL
  4. VIT B^S [Concomitant]
  5. MULTI [Concomitant]

REACTIONS (5)
  - Diarrhoea [None]
  - Dyspnoea [None]
  - Weight increased [None]
  - Muscle spasms [None]
  - Wheezing [None]
